FAERS Safety Report 23213456 (Version 2)
Quarter: 2023Q4

REPORT INFORMATION
  Report Type: Spontaneous
  Country: DE (occurrence: DE)
  Receive Date: 20231121
  Receipt Date: 20231127
  Transmission Date: 20240110
  Serious: Yes (Hospitalization)
  Sender: FDA-Public Use
  Company Number: DE-SAMSUNG BIOEPIS-SB-2023-30753

PATIENT
  Age: 68 Year
  Sex: Female
  Weight: 70 kg

DRUGS (10)
  1. ONTRUZANT [Suspect]
     Active Substance: TRASTUZUMAB-DTTB
     Indication: Oesophageal adenocarcinoma
     Dosage: D1 8MG/KG, IV; 6MG/KG IV D22/D43 PRE AND POST OP, AFTERWARDS 6MG/KG IV D1 Q3W
     Route: 042
     Dates: start: 20231108
  2. PEMBROLIZUMAB [Suspect]
     Active Substance: PEMBROLIZUMAB
     Indication: Oesophageal adenocarcinoma
     Dosage: 200MG FLAT DOSE, IV, D1/D22/D43 PRE-AND POST OP, AFTERWARDS D1 Q3W
     Route: 042
     Dates: start: 20231108
  3. OXALIPLATIN [Suspect]
     Active Substance: OXALIPLATIN
     Indication: Oesophageal adenocarcinoma
     Dosage: 85 MG/M2, IV, D1/D15/D29 AND D43 PRE-AND POST OP
     Route: 042
     Dates: start: 20231109
  4. LEUCOVORIN [Suspect]
     Active Substance: LEUCOVORIN\LEUCOVORIN CALCIUM
     Indication: Oesophageal adenocarcinoma
     Dosage: 200 MG/M2, IV, D1/D15/D29 AND D43 PRE-AND POST OP
     Route: 042
     Dates: start: 20231109
  5. FLUOROURACIL [Suspect]
     Active Substance: FLUOROURACIL
     Indication: Oesophageal adenocarcinoma
     Dosage: 2600 MG/M2, IV, D1/D15/D29 AND D43 PRE-AND POST OP
     Route: 042
     Dates: start: 20231109
  6. DOCETAXEL [Suspect]
     Active Substance: DOCETAXEL\DOCETAXEL ANHYDROUS
     Indication: Oesophageal adenocarcinoma
     Dosage: 50 MG/M2, IV, D1/D15/D29 AND D43 PRE-AND POST OP
     Route: 042
     Dates: start: 20231109
  7. PANTOPRAZOLE [Concomitant]
     Active Substance: PANTOPRAZOLE
     Indication: Product used for unknown indication
     Dosage: AS REQUIRED
     Route: 048
     Dates: start: 202310
  8. ONDANSETRON [Concomitant]
     Active Substance: ONDANSETRON
     Indication: Product used for unknown indication
     Dosage: AS REQUIRED
     Route: 048
     Dates: start: 202310
  9. LOPERAMIDE [Concomitant]
     Active Substance: LOPERAMIDE
     Indication: Product used for unknown indication
     Dosage: AS REQUIRED
     Route: 048
     Dates: start: 202310
  10. DEXAMETHASONE [Concomitant]
     Active Substance: DEXAMETHASONE
     Indication: Product used for unknown indication
     Dosage: D-1, D0, D1 CTX
     Route: 048
     Dates: start: 202311

REACTIONS (3)
  - Dysphagia [Recovered/Resolved]
  - Oropharyngeal pain [Recovered/Resolved]
  - Product use in unapproved indication [Unknown]

NARRATIVE: CASE EVENT DATE: 20231112
